FAERS Safety Report 21303666 (Version 2)
Quarter: 2022Q3

REPORT INFORMATION
  Report Type: Spontaneous
  Country: BE (occurrence: BE)
  Receive Date: 20220907
  Receipt Date: 20220921
  Transmission Date: 20221027
  Serious: Yes (Death, Hospitalization, Other)
  Sender: FDA-Public Use
  Company Number: BE-FAMHP-DHH-N2022-118404

PATIENT
  Age: 53 Year
  Sex: Female
  Weight: 43 kg

DRUGS (13)
  1. CARBOPLATIN [Suspect]
     Active Substance: CARBOPLATIN
     Indication: Ovarian epithelial cancer
     Route: 065
     Dates: start: 201609
  2. CARBOPLATIN [Suspect]
     Active Substance: CARBOPLATIN
     Dosage: REDUCED DOSE
     Route: 065
     Dates: start: 20201228, end: 20210205
  3. CARBOPLATIN [Suspect]
     Active Substance: CARBOPLATIN
     Route: 065
     Dates: start: 201805, end: 201807
  4. CARBOPLATIN [Suspect]
     Active Substance: CARBOPLATIN
     Route: 065
     Dates: start: 201701
  5. PACLITAXEL [Suspect]
     Active Substance: PACLITAXEL
     Indication: Product used for unknown indication
  6. DOXORUBICIN HYDROCHLORIDE [Suspect]
     Active Substance: DOXORUBICIN HYDROCHLORIDE
     Indication: Ovarian epithelial cancer
     Route: 065
     Dates: start: 20201030
  7. LYNPARZA [Suspect]
     Active Substance: OLAPARIB
     Indication: Ovarian epithelial cancer
     Dosage: OLAPARIB 50MG START 8COMPR 2X/DAY DETAIL DOSAGE: OLAPARIB 50MG START 8 COMPR 2X/DAY; 05/19/20: 6 COM
     Route: 048
     Dates: start: 20180906, end: 20200817
  8. TAXOL [Suspect]
     Active Substance: PACLITAXEL
     Indication: Ovarian epithelial cancer
     Dosage: REDUCED DOSE
     Route: 065
     Dates: end: 20210402
  9. TAXOL [Suspect]
     Active Substance: PACLITAXEL
     Route: 065
     Dates: start: 201701
  10. TAXOL [Suspect]
     Active Substance: PACLITAXEL
     Route: 065
     Dates: start: 201609
  11. GEMCITABINE [Concomitant]
     Active Substance: GEMCITABINE
     Indication: Ovarian epithelial cancer
     Dates: start: 201805, end: 201807
  12. BEVACIZUMAB [Concomitant]
     Active Substance: BEVACIZUMAB
     Indication: Ovarian epithelial cancer
     Dates: start: 201704
  13. ALPRAZOLAM [Concomitant]
     Active Substance: ALPRAZOLAM
     Indication: Product used for unknown indication
     Route: 065

REACTIONS (4)
  - Pancytopenia [Fatal]
  - Acute myeloid leukaemia [Fatal]
  - Myelodysplastic syndrome [Fatal]
  - Myelodysplastic syndrome [Fatal]

NARRATIVE: CASE EVENT DATE: 20201210
